FAERS Safety Report 10175710 (Version 2)
Quarter: 2014Q2

REPORT INFORMATION
  Report Type: Spontaneous
  Country: CN (occurrence: CN)
  Receive Date: 20140516
  Receipt Date: 20140516
  Transmission Date: 20141212
  Serious: Yes (Life-Threatening, Hospitalization)
  Sender: FDA-Public Use
  Company Number: CN-BEH-2014042360

PATIENT
  Age: 61 Year
  Sex: Male

DRUGS (2)
  1. HUMAN SERUM ALBUMIN, 10G, 20% [Suspect]
     Indication: HYPOALBUMINAEMIA
     Dosage: DOSE: 1 UNIT, FREQUENCY: ST, BATCH NO.: UNAVAILABLE, EXPIRY DATE: UNKNOWN, SLOW INFUSION
     Route: 042
     Dates: start: 20070526, end: 20070526
  2. HUMAN SERUM ALBUMIN, 10G, 20% [Suspect]
     Indication: SUPPLEMENTATION THERAPY
     Dosage: DOSE: 1 UNIT, FREQUENCY: ST, BATCH NO.: UNAVAILABLE, EXPIRY DATE: UNKNOWN, SLOW INFUSION
     Route: 042
     Dates: start: 20070526, end: 20070526

REACTIONS (22)
  - Drug hypersensitivity [Recovered/Resolved]
  - Laryngeal oedema [Recovered/Resolved]
  - Pruritus generalised [Recovered/Resolved]
  - Rash macular [Recovered/Resolved]
  - Erythema [Recovered/Resolved]
  - Papule [Recovered/Resolved]
  - Skin plaque [Recovered/Resolved]
  - Face oedema [Recovered/Resolved]
  - Eyelid oedema [Recovered/Resolved]
  - Urticaria [Recovered/Resolved]
  - Airway complication of anaesthesia [Recovered/Resolved]
  - Throat tightness [Recovered/Resolved]
  - Dyspnoea [Recovered/Resolved]
  - Swollen tongue [Recovered/Resolved]
  - Cyanosis [Recovered/Resolved]
  - Dyspnoea [Recovered/Resolved]
  - Mouth breathing [Recovered/Resolved]
  - Restlessness [Recovered/Resolved]
  - Cyanosis central [Recovered/Resolved]
  - Rales [Recovered/Resolved]
  - Tongue disorder [Recovered/Resolved]
  - Oxygen saturation decreased [Recovered/Resolved]
